FAERS Safety Report 5971046-7 (Version None)
Quarter: 2008Q4

REPORT INFORMATION
  Report Type: 
  Country: None (occurrence: None)
  Receive Date: 20081128
  Receipt Date: 20081119
  Transmission Date: 20090506
  Serious: Yes (Hospitalization, Disabling, Other)
  Sender: FDA-Public Use
  Company Number: PHEH2008US10121

PATIENT
  Sex: Male
  Weight: 76.2 kg

DRUGS (7)
  1. ZOMETA [Suspect]
     Indication: OSTEOPOROSIS
     Dosage: 3.8 MG, ONCE/SINGLE
     Dates: start: 20080818
  2. ZOMETA [Suspect]
     Indication: PAIN
  3. AMITRIPTYLINE HCL [Concomitant]
     Indication: INSOMNIA
     Dosage: 75 MG, QD
     Route: 048
  4. AMITRIPTYLINE HCL [Concomitant]
     Indication: HEADACHE
  5. ANTIINFLAMMATORY/ANTIRHEUMATIC PRODUCTS [Concomitant]
     Indication: OSTEOPOROSIS
     Dosage: UNK
  6. AMBIEN [Concomitant]
     Indication: SLEEP DISORDER
     Dosage: 5 MG, PRN
     Route: 048
     Dates: start: 20051003
  7. PRILOSEC [Concomitant]
     Indication: REFLUX GASTRITIS
     Dosage: 20 MG, QD

REACTIONS (4)
  - ANTINUCLEAR ANTIBODY INCREASED [None]
  - BONE PAIN [None]
  - CHEST PAIN [None]
  - MUSCULOSKELETAL CHEST PAIN [None]
